FAERS Safety Report 6451589-2 (Version None)
Quarter: 2009Q4

REPORT INFORMATION
  Report Type: 
  Country: None (occurrence: None)
  Receive Date: 20091120
  Receipt Date: 20091120
  Transmission Date: 20100525
  Serious: Yes (Hospitalization)
  Sender: FDA-Public Use
  Company Number: None

PATIENT
  Sex: Male
  Weight: 92.9874 kg

DRUGS (2)
  1. PEGASYS [Suspect]
     Indication: HEPATITIS C
     Dosage: 180 MCG/ 0.5ML WEEKLY SQ
     Route: 058
     Dates: start: 20091104
  2. RIBAVIRIN [Suspect]
     Indication: HEPATITIS C
     Dosage: 200 MG CAP 84 3 TABSAM/2 TABS PM PO
     Route: 048
     Dates: start: 20091104

REACTIONS (1)
  - DYSPNOEA [None]
